FAERS Safety Report 5165135-7 (Version None)
Quarter: 2006Q4

REPORT INFORMATION
  Report Type: 
  Country: None (occurrence: None)
  Receive Date: 20061124
  Receipt Date: 20061113
  Transmission Date: 20070319
  Serious: Yes (Hospitalization)
  Sender: FDA-Public Use
  Company Number: 2006PV023727

PATIENT
  Age: 27 Year
  Sex: Female
  Weight: 132.4503 kg

DRUGS (9)
  1. BYETTA [Suspect]
     Indication: DIABETES MELLITUS NON-INSULIN-DEPENDENT
     Dosage: 5 MCG; BID; SC
     Route: 058
     Dates: start: 20060101
  2. LEXAPRO [Concomitant]
  3. ADVAIR DISKUS 100/50 [Concomitant]
  4. RESTORIL [Concomitant]
  5. HUMULIN N [Concomitant]
  6. HUMALOG [Concomitant]
  7. METFORMIN [Concomitant]
  8. PREDNISONE TAB [Concomitant]
  9. GLUCOPHAGE [Concomitant]

REACTIONS (13)
  - BLOOD COUNT ABNORMAL [None]
  - BLOOD GLUCOSE INCREASED [None]
  - DIARRHOEA [None]
  - HEADACHE [None]
  - HYPOGLYCAEMIA [None]
  - LEUKOCYTOSIS [None]
  - LUMBAR PUNCTURE ABNORMAL [None]
  - MENINGITIS ASEPTIC [None]
  - MENINGITIS VIRAL [None]
  - NAUSEA [None]
  - PYREXIA [None]
  - RED BLOOD CELLS CSF POSITIVE [None]
  - VOMITING [None]
